FAERS Safety Report 15204480 (Version 1)
Quarter: 2018Q3

REPORT INFORMATION
  Report Type: Report from Study
  Country: CA (occurrence: CA)
  Receive Date: 20180726
  Receipt Date: 20180726
  Transmission Date: 20181010
  Serious: Yes (Death)
  Sender: FDA-Public Use
  Company Number: CA-TAIHO ONCOLOGY  INC-EU-2018-00489

PATIENT
  Age: 76 Year
  Sex: Male
  Weight: 86.4 kg

DRUGS (1)
  1. LONSURF [Suspect]
     Active Substance: TIPIRACIL HYDROCHLORIDE\TRIFLURIDINE
     Indication: COLORECTAL CANCER METASTATIC
     Dosage: CYCLE 1
     Route: 048
     Dates: start: 20180330, end: 20180426

REACTIONS (3)
  - Death [Fatal]
  - Wrong dose [Recovered/Resolved]
  - Dose calculation error [None]

NARRATIVE: CASE EVENT DATE: 20180330
